FAERS Safety Report 11424437 (Version 1)
Quarter: 2015Q3

REPORT INFORMATION
  Report Type: Spontaneous
  Country: US (occurrence: US)
  Receive Date: 20150827
  Receipt Date: 20150827
  Transmission Date: 20151125
  Serious: Yes (Other)
  Sender: FDA-Public Use
  Company Number: US-SA-2014SA170809

PATIENT
  Age: 70 Year
  Sex: Female

DRUGS (4)
  1. ALTACE [Concomitant]
     Active Substance: RAMIPRIL
  2. TOPROL XL [Concomitant]
     Active Substance: METOPROLOL SUCCINATE
  3. TOPROL XL [Concomitant]
     Active Substance: METOPROLOL SUCCINATE
  4. MULTAQ [Suspect]
     Active Substance: DRONEDARONE
     Indication: ATRIAL TACHYCARDIA
     Route: 065
     Dates: end: 201410

REACTIONS (1)
  - Atrial fibrillation [Not Recovered/Not Resolved]

NARRATIVE: CASE EVENT DATE: 2014
